FAERS Safety Report 9528581 (Version 1)
Quarter: 2013Q1

REPORT INFORMATION
  Report Type: Spontaneous
  Country: US (occurrence: None)
  Receive Date: 20130314
  Receipt Date: 20130314
  Transmission Date: 20140127
  Serious: No
  Sender: FDA-Public Use
  Company Number: 1211USA010944

PATIENT
  Age: 53 Year
  Sex: Male

DRUGS (3)
  1. PEGINTRON [Suspect]
     Indication: HEPATITIS C
     Dates: start: 20121123
  2. RIBAVIRIN [Suspect]
     Indication: HEPATITIS C
     Dates: start: 20121123
  3. VICTRELIS [Suspect]
     Indication: HEPATITIS C
     Dates: start: 20121123

REACTIONS (8)
  - Nervous system disorder [None]
  - Hypoaesthesia [None]
  - Feeling abnormal [None]
  - Dyspepsia [None]
  - Injection site haemorrhage [None]
  - Back pain [None]
  - Injection site reaction [None]
  - Influenza like illness [None]
